FAERS Safety Report 4566899-3 (Version None)
Quarter: 2005Q1

REPORT INFORMATION
  Report Type: 
  Country: None (occurrence: None)
  Receive Date: 20050201
  Receipt Date: 20030409
  Transmission Date: 20050727
  Serious: Yes (Other)
  Sender: FDA-Public Use
  Company Number: US-BRISTOL-MYERS SQUIBB COMPANY-12241253

PATIENT
  Age: 44 Year
  Sex: Female

DRUGS (7)
  1. STADOL [Suspect]
     Indication: MIGRAINE
     Route: 045
     Dates: start: 19970331
  2. STADOL [Suspect]
     Indication: PAIN
     Route: 045
     Dates: start: 19970331
  3. CARISOPRODOL [Concomitant]
  4. HYDROCODONE + ACETAMINOPHEN [Concomitant]
  5. ALPRAZOLAM [Concomitant]
  6. MEPERGAN [Concomitant]
  7. ULTRAM [Concomitant]

REACTIONS (1)
  - DEPENDENCE [None]
